FAERS Safety Report 6344465-7 (Version None)
Quarter: 2009Q3

REPORT INFORMATION
  Report Type: 
  Country: None (occurrence: None)
  Receive Date: 20090903
  Receipt Date: 20090821
  Transmission Date: 20100115
  Serious: Yes (Hospitalization)
  Sender: FDA-Public Use
  Company Number: 237757K09USA

PATIENT
  Age: 32 Year
  Sex: Female
  Weight: 96 kg

DRUGS (5)
  1. REBIF [Suspect]
     Indication: MULTIPLE SCLEROSIS
     Dosage: 44 MCG, 3 IN 1 WEEKS, SUBCUTANEOUS
     Route: 058
     Dates: start: 20090424
  2. IBUPROFEN (IBURPOFEN) [Concomitant]
  3. TYLENOL [Concomitant]
  4. NAPROXEN [Concomitant]
  5. PRILOSEC [Concomitant]

REACTIONS (4)
  - CHOLELITHIASIS [None]
  - DYSPEPSIA [None]
  - HYPOPHAGIA [None]
  - PANCREATITIS [None]
